FAERS Safety Report 8580435-6 (Version None)
Quarter: 2012Q3

REPORT INFORMATION
  Report Type: 
  Country: None (occurrence: None)
  Receive Date: 20120808
  Receipt Date: 20120801
  Transmission Date: 20120928
  Serious: Yes (Hospitalization, Other)
  Sender: FDA-Public Use
  Company Number: FR-PFIZER INC-2012186256

PATIENT
  Age: 39 Year
  Sex: Female

DRUGS (7)
  1. SULFASALAZINE [Suspect]
     Dosage: 3 DF, 1X/DAY
     Route: 048
  2. PLAQUENIL [Suspect]
     Indication: SYSTEMIC LUPUS ERYTHEMATOSUS
     Dosage: 2 DF, 1X/DAY
     Route: 048
     Dates: start: 20060101
  3. PREDNISONE TAB [Suspect]
     Dosage: 1 MG, 1X/DAY
     Route: 048
  4. PREDNISONE TAB [Suspect]
     Indication: SYSTEMIC LUPUS ERYTHEMATOSUS
     Dosage: 5 MG PER DAY INITIALLY, AND AT 1 MG/DAY AFTER SULFALSALAZINE INSTITUTION
     Route: 048
     Dates: start: 20060101
  5. SULFASALAZINE [Suspect]
     Dosage: 2 DF, 1X/DAY
     Route: 048
  6. SULFASALAZINE [Suspect]
     Dosage: 4 DF, 1X/DAY
     Route: 048
     Dates: end: 20120604
  7. SULFASALAZINE [Suspect]
     Indication: ARTHRALGIA
     Dosage: 1 DF, 1X/DAY
     Route: 048
     Dates: start: 20120418

REACTIONS (5)
  - RASH [None]
  - HYPERSENSITIVITY [None]
  - ARTHRALGIA [None]
  - MYALGIA [None]
  - OEDEMA PERIPHERAL [None]
